FAERS Safety Report 24994590 (Version 1)
Quarter: 2025Q1

REPORT INFORMATION
  Report Type: Spontaneous
  Country: US (occurrence: None)
  Receive Date: 20250220
  Receipt Date: 20250220
  Transmission Date: 20250408
  Serious: No
  Sender: FDA-CTU
  Company Number: None

PATIENT
  Age: 46 Year
  Sex: Male
  Weight: 111 kg

DRUGS (1)
  1. OLANZAPINE [Suspect]
     Active Substance: OLANZAPINE
     Indication: Schizoaffective disorder
     Dosage: FREQUENCY : AT BEDTIME;?
     Route: 048

REACTIONS (5)
  - Headache [None]
  - Parkinsonism [None]
  - Vomiting [None]
  - Dysarthria [None]
  - Treatment noncompliance [None]

NARRATIVE: CASE EVENT DATE: 20241107
